FAERS Safety Report 7261371-4 (Version None)
Quarter: 2011Q1

REPORT INFORMATION
  Report Type: 
  Country: None (occurrence: None)
  Receive Date: 20110130
  Receipt Date: 20101021
  Transmission Date: 20110831
  Serious: No
  Sender: FDA-Public Use
  Company Number: US-ABBOTT-10P-163-0680256-00

PATIENT
  Sex: Female
  Weight: 64.468 kg

DRUGS (4)
  1. LIALDA [Concomitant]
     Indication: COLITIS ULCERATIVE
  2. CALCIUM [Concomitant]
     Indication: MINERAL SUPPLEMENTATION
  3. HUMIRA [Suspect]
     Indication: COLITIS ULCERATIVE
     Dates: start: 20100914
  4. MULTI-VITAMIN [Concomitant]
     Indication: VITAMIN SUPPLEMENTATION

REACTIONS (5)
  - HEADACHE [None]
  - PAIN [None]
  - WEIGHT INCREASED [None]
  - LETHARGY [None]
  - NASAL CONGESTION [None]
